FAERS Safety Report 23161642 (Version 1)
Quarter: 2023Q4

REPORT INFORMATION
  Report Type: Report from Study
  Country: US (occurrence: US)
  Receive Date: 20231108
  Receipt Date: 20231108
  Transmission Date: 20240109
  Serious: Yes (Other)
  Sender: FDA-Public Use
  Company Number: US-ABBVIE-5483849

PATIENT
  Sex: Male

DRUGS (1)
  1. HUMIRA [Suspect]
     Active Substance: ADALIMUMAB
     Indication: Crohn^s disease
     Route: 058
     Dates: start: 2011

REACTIONS (6)
  - Medical induction of coma [Unknown]
  - Therapeutic product effect decreased [Unknown]
  - Sepsis [Unknown]
  - Abdominal operation [Unknown]
  - Short-bowel syndrome [Unknown]
  - Tracheostomy [Unknown]

NARRATIVE: CASE EVENT DATE: 20180101
